FAERS Safety Report 14157771 (Version 2)
Quarter: 2017Q4

REPORT INFORMATION
  Report Type: Spontaneous
  Country: US (occurrence: US)
  Receive Date: 20171103
  Receipt Date: 20171106
  Transmission Date: 20180321
  Serious: Yes (Other)
  Sender: FDA-Public Use
  Company Number: US-JNJFOC-20171034119

PATIENT
  Age: 50 Year
  Sex: Female
  Weight: 60.78 kg

DRUGS (6)
  1. SIMPONI ARIA [Suspect]
     Active Substance: GOLIMUMAB
     Indication: SCLERODERMA
     Route: 042
     Dates: start: 2016
  2. SIMPONI [Suspect]
     Active Substance: GOLIMUMAB
     Indication: SCLERODERMA
     Route: 058
     Dates: end: 201702
  3. SIMPONI [Suspect]
     Active Substance: GOLIMUMAB
     Indication: ANKYLOSING SPONDYLITIS
     Route: 058
     Dates: end: 201702
  4. SIMPONI ARIA [Suspect]
     Active Substance: GOLIMUMAB
     Indication: ANKYLOSING SPONDYLITIS
     Route: 042
     Dates: start: 2016
  5. SIMPONI ARIA [Suspect]
     Active Substance: GOLIMUMAB
     Indication: POLYCHONDRITIS
     Route: 042
     Dates: start: 2016
  6. SIMPONI [Suspect]
     Active Substance: GOLIMUMAB
     Indication: POLYCHONDRITIS
     Route: 058
     Dates: end: 201702

REACTIONS (3)
  - Polychondritis [Not Recovered/Not Resolved]
  - Scleroderma [Not Recovered/Not Resolved]
  - Therapeutic response decreased [Unknown]

NARRATIVE: CASE EVENT DATE: 201702
